FAERS Safety Report 9909541 (Version 4)
Quarter: 2014Q4

REPORT INFORMATION
  Report Type: Spontaneous
  Country: US (occurrence: US)
  Receive Date: 20140219
  Receipt Date: 20141017
  Transmission Date: 20150529
  Serious: Yes (Hospitalization, Disabling)
  Sender: FDA-Public Use
  Company Number: US-BAYER-2014-025145

PATIENT
  Age: 21 Year
  Sex: Female
  Weight: 73 kg

DRUGS (5)
  1. ADDERALL [Concomitant]
     Active Substance: AMPHETAMINE ASPARTATE\AMPHETAMINE SULFATE\DEXTROAMPHETAMINE SACCHARATE\DEXTROAMPHETAMINE SULFATE
     Dosage: UNK
     Dates: start: 2002
  2. MIRENA [Suspect]
     Active Substance: LEVONORGESTREL
     Indication: CONTRACEPTION
     Dosage: 20 MCG/24HR, CONT
     Route: 015
     Dates: start: 20071023, end: 20090426
  3. METHOTREXAT [METHOTREXATE SODIUM] [Concomitant]
  4. DESOGESTREL W/ETHINYLESTRADIOL [Concomitant]
     Active Substance: DESOGESTREL\ETHINYL ESTRADIOL
     Dosage: UNK
     Dates: start: 2002
  5. EFFEXOR [Concomitant]
     Active Substance: VENLAFAXINE HYDROCHLORIDE
     Dosage: UNK
     Dates: start: 2002

REACTIONS (12)
  - Device dislocation [None]
  - Pain [None]
  - Anxiety [None]
  - General physical health deterioration [None]
  - Drug ineffective [None]
  - Ectopic pregnancy with contraceptive device [None]
  - Deformity [None]
  - Emotional distress [None]
  - Injury [None]
  - Depression [None]
  - Ruptured ectopic pregnancy [None]
  - Anhedonia [None]

NARRATIVE: CASE EVENT DATE: 2009
